FAERS Safety Report 11829912 (Version 2)
Quarter: 2016Q1

REPORT INFORMATION
  Report Type: Report from Study
  Country: US (occurrence: US)
  Receive Date: 20151213
  Receipt Date: 20160218
  Transmission Date: 20160525
  Serious: No
  Sender: FDA-Public Use
  Company Number: US-AMGEN-USASL2015130863

PATIENT
  Age: 53 Year
  Sex: Male
  Weight: 102.4 kg

DRUGS (1)
  1. ENBREL [Suspect]
     Active Substance: ETANERCEPT
     Indication: PSORIASIS
     Dosage: 50 MG, QWK
     Route: 065
     Dates: start: 20141230

REACTIONS (8)
  - Erythema [Unknown]
  - Rash [Unknown]
  - Pain [Unknown]
  - Dry skin [Unknown]
  - Skin exfoliation [Unknown]
  - Constipation [Unknown]
  - Skin fissures [Unknown]
  - Back pain [Unknown]

NARRATIVE: CASE EVENT DATE: 201511
